FAERS Safety Report 25371109 (Version 2)
Quarter: 2025Q2

REPORT INFORMATION
  Report Type: Spontaneous
  Country: US (occurrence: US)
  Receive Date: 20250529
  Receipt Date: 20250605
  Transmission Date: 20250716
  Serious: No
  Sender: ROCHE
  Company Number: US-ROCHE-10000293280

PATIENT
  Age: 14 Year
  Sex: Male
  Weight: 52.16 kg

DRUGS (4)
  1. XOLAIR [Suspect]
     Active Substance: OMALIZUMAB
     Indication: Food allergy
     Route: 058
     Dates: start: 2025, end: 202505
  2. albuterol PRN [Concomitant]
  3. Zyrtec 10 mg daily [Concomitant]
  4. Breo ellipta daily [Concomitant]

REACTIONS (1)
  - Alopecia [Unknown]

NARRATIVE: CASE EVENT DATE: 20250101
